FAERS Safety Report 8782152 (Version 1)
Quarter: 2012Q4

REPORT INFORMATION
  Report Type: 
  Country: US (occurrence: US)
  Receive Date: 20120913
  Receipt Date: 20120913
  Transmission Date: 20130627
  Serious: No
  Sender: FDA-Public Use
  Company Number: US-ASTRAZENECA-2012SE69091

PATIENT
  Age: 70 Year
  Sex: Female
  Weight: 83.9 kg

DRUGS (3)
  1. SYMBICORT [Suspect]
     Indication: EMPHYSEMA
     Dosage: 160 MCG, BID
     Route: 055
     Dates: start: 201107
  2. SYMBICORT [Suspect]
     Indication: CHRONIC OBSTRUCTIVE PULMONARY DISEASE
     Dosage: 160 MCG, BID
     Route: 055
     Dates: start: 201107
  3. HIGH BLOOD PRESSURE MEDICATIONS [Concomitant]
     Indication: HYPERTENSION

REACTIONS (3)
  - Dyspnoea [Unknown]
  - Fatigue [Unknown]
  - Adverse event [Unknown]
